FAERS Safety Report 24755266 (Version 1)
Quarter: 2024Q4

REPORT INFORMATION
  Report Type: Spontaneous
  Country: NO (occurrence: NO)
  Receive Date: 20241219
  Receipt Date: 20241219
  Transmission Date: 20250114
  Serious: Yes (Hospitalization)
  Sender: FRESENIUS KABI
  Company Number: None

PATIENT
  Age: 44 Year
  Sex: Female

DRUGS (3)
  1. CARBOPLATIN [Suspect]
     Active Substance: CARBOPLATIN
     Indication: Neoplasm malignant
     Dosage: DOSE NOT STATED IN REPORT. REACTION STARTED WHEN 10 ML OF THE FOURTH COURSE WAS ADMINISTERED.
     Dates: start: 20241007, end: 20241007
  2. PEMBROLIZUMAB [Concomitant]
     Active Substance: PEMBROLIZUMAB
     Indication: Neoplasm malignant
     Dosage: DOSE NOT STATED IN REPORT.
     Dates: start: 20241007, end: 20241007
  3. PACLITAXEL [Concomitant]
     Active Substance: PACLITAXEL
     Indication: Neoplasm malignant
     Dosage: DOSE NOT STATED IN REPORT.
     Dates: start: 20241007, end: 20241007

REACTIONS (1)
  - Anaphylactic reaction [Recovered/Resolved]

NARRATIVE: CASE EVENT DATE: 20241007
